FAERS Safety Report 10463389 (Version 1)
Quarter: 2014Q3

REPORT INFORMATION
  Report Type: Spontaneous
  Country: US (occurrence: US)
  Receive Date: 20140919
  Receipt Date: 20140919
  Transmission Date: 20150326
  Serious: Yes (Death)
  Sender: FDA-Public Use
  Company Number: US-CIPLA LTD.-2014US01358

PATIENT

DRUGS (3)
  1. CARBOPLATIN. [Suspect]
     Active Substance: CARBOPLATIN
     Indication: SMALL CELL LUNG CANCER
     Dosage: AUC 5 ON DAY 1
  2. ETOPOSIDE. [Suspect]
     Active Substance: ETOPOSIDE
     Indication: SMALL CELL LUNG CANCER
     Dosage: 100 MG/M2,ON DAYS 1-3
  3. OBATOCLAX [Suspect]
     Active Substance: OBATOCLAX
     Indication: SMALL CELL LUNG CANCER
     Dosage: 30 MG INFUSED OVER 3 H ON DAYS 1-3

REACTIONS (1)
  - Pneumonia [Fatal]
